FAERS Safety Report 10064188 (Version 3)
Quarter: 2014Q1

REPORT INFORMATION
  Report Type: Spontaneous
  Country: US (occurrence: None)
  Receive Date: 20131129
  Receipt Date: 20140107
  Transmission Date: 20141002
  Serious: Yes (Hospitalization)
  Sender: FDA-Public Use
  Company Number: US-000865

PATIENT
  Age: 65 Year
  Sex: Male

DRUGS (5)
  1. GATTEX [Suspect]
     Indication: SHORT-BOWEL SYNDROME
     Dosage: 0.38 ML QD, STREN/ VOLUM: 0.38 ML/ FREQU: DAILY INJECTION SUBCUTANEOUS
     Route: 058
     Dates: start: 201311, end: 20131214
  2. SOLUTIONS FOR PARENTERAL NUTRITION [Concomitant]
  3. MAGNESIUM [Concomitant]
  4. CAMPHORATED TINCTURE OF OPIUM [Concomitant]
  5. AMBIEN [Concomitant]

REACTIONS (7)
  - Blood potassium decreased [None]
  - Nausea [None]
  - Flatulence [None]
  - Renal pain [None]
  - Abdominal pain [None]
  - Renal disorder [None]
  - Renal failure [None]
